FAERS Safety Report 5639839-3 (Version None)
Quarter: 2008Q1

REPORT INFORMATION
  Report Type: 
  Country: None (occurrence: None)
  Receive Date: 20080226
  Receipt Date: 20080226
  Transmission Date: 20080703
  Serious: Yes (Other)
  Sender: FDA-Public Use
  Company Number: None

PATIENT

DRUGS (3)
  1. ABILIFY [Suspect]
     Indication: BIPOLAR DISORDER
     Dosage: 5MG QD P.O.
     Route: 048
     Dates: start: 20071224, end: 20080102
  2. ABILIFY [Suspect]
     Indication: BIPOLAR DISORDER
     Dosage: 5MG QD P.O.
     Route: 048
     Dates: start: 20080211, end: 20080221
  3. XANAX [Concomitant]

REACTIONS (1)
  - LIVER FUNCTION TEST ABNORMAL [None]
